FAERS Safety Report 17679705 (Version 2)
Quarter: 2020Q2

REPORT INFORMATION
  Report Type: Spontaneous
  Country: US (occurrence: US)
  Receive Date: 20200417
  Receipt Date: 20200515
  Transmission Date: 20200714
  Serious: No
  Sender: FDA-Public Use
  Company Number: US-SA-2020SA098305

PATIENT
  Sex: Female
  Weight: 81.65 kg

DRUGS (7)
  1. CLOBETASOL [CLOBETASOL PROPIONATE] [Concomitant]
  2. TRIAMCINOLONE ACETONIDE. [Concomitant]
     Active Substance: TRIAMCINOLONE ACETONIDE
  3. DUPIXENT [Suspect]
     Active Substance: DUPILUMAB
     Indication: ILL-DEFINED DISORDER
     Dosage: 300 MG, QOW
     Route: 058
  4. VITAMIN D [VITAMIN D NOS] [Concomitant]
     Active Substance: VITAMIN D NOS
  5. MULTIVITAMINS [VITAMINS NOS] [Concomitant]
     Active Substance: VITAMINS
  6. CALCIUM + D3 [CALCIUM CARBONATE;COLECALCIFEROL] [Concomitant]
  7. TACROLIMUS. [Concomitant]
     Active Substance: TACROLIMUS

REACTIONS (7)
  - Skin weeping [Unknown]
  - Nasopharyngitis [Unknown]
  - Condition aggravated [Unknown]
  - Dry skin [Unknown]
  - Dry eye [Unknown]
  - Visual impairment [Unknown]
  - Skin exfoliation [Unknown]
